FAERS Safety Report 19742497 (Version 9)
Quarter: 2022Q1

REPORT INFORMATION
  Report Type: Report from Study
  Country: US (occurrence: US)
  Receive Date: 20210825
  Receipt Date: 20220328
  Transmission Date: 20220423
  Serious: Yes (Hospitalization, Other)
  Sender: FDA-Public Use
  Company Number: NVSC2021US185374

PATIENT
  Age: 58 Year
  Sex: Female
  Weight: 62.585 kg

DRUGS (4)
  1. TREPROSTINIL [Suspect]
     Active Substance: TREPROSTINIL
     Indication: Pulmonary arterial hypertension
     Dosage: 80 (NG/KG/MIN)
     Route: 042
     Dates: start: 20210802
  2. TREPROSTINIL [Suspect]
     Active Substance: TREPROSTINIL
     Dosage: 84 NG/KG/MIN
     Route: 042
     Dates: start: 20210208
  3. AMBRISENTAN [Concomitant]
     Active Substance: AMBRISENTAN
     Indication: Product used for unknown indication
     Dosage: UNK
     Route: 065
  4. TADALAFIL [Concomitant]
     Active Substance: TADALAFIL
     Indication: Product used for unknown indication
     Dosage: UNK
     Route: 065

REACTIONS (8)
  - Vascular device infection [Recovered/Resolved]
  - Loss of consciousness [Unknown]
  - Infusion site extravasation [Unknown]
  - Rash [Unknown]
  - Hypersensitivity [Unknown]
  - Hypotension [Unknown]
  - Pruritus [Unknown]
  - Diarrhoea [Unknown]

NARRATIVE: CASE EVENT DATE: 20210919
